FAERS Safety Report 10576334 (Version 1)
Quarter: 2014Q4

REPORT INFORMATION
  Report Type: Spontaneous
  Country: JP (occurrence: JP)
  Receive Date: 20141111
  Receipt Date: 20141111
  Transmission Date: 20150529
  Serious: Yes (Other)
  Sender: FDA-Public Use
  Company Number: JP-SA-2014SA155177

PATIENT
  Age: 34 Year
  Sex: Female

DRUGS (3)
  1. FLUPHENAZINE [Concomitant]
     Active Substance: FLUPHENAZINE
     Route: 048
  2. DULOXETINE HYDROCHLORIDE. [Concomitant]
     Active Substance: DULOXETINE HYDROCHLORIDE
     Route: 048
  3. ZOLPIDEM TARTRATE. [Suspect]
     Active Substance: ZOLPIDEM TARTRATE
     Indication: SCHIZOPHRENIA
     Route: 048

REACTIONS (3)
  - Mastitis [Unknown]
  - Hyperprolactinaemia [Unknown]
  - Off label use [Unknown]
